FAERS Safety Report 5492383-9 (Version None)
Quarter: 2007Q4

REPORT INFORMATION
  Report Type: 
  Country: None (occurrence: None)
  Receive Date: 20071015
  Receipt Date: 20070814
  Transmission Date: 20080405
  Serious: No
  Sender: FDA-Public Use
  Company Number: 2007SP002852

PATIENT
  Age: 50 Year
  Sex: Female

DRUGS (3)
  1. LUNESTA [Suspect]
     Dosage: 3 MG;ORAL
     Route: 048
  2. ANTIHYPERTENSIVES [Concomitant]
  3. CHOLESTEROL- AND TRIGLYCERIDE REDUCERS [Concomitant]

REACTIONS (1)
  - DYSGEUSIA [None]
